FAERS Safety Report 14118409 (Version 3)
Quarter: 2017Q4

REPORT INFORMATION
  Report Type: Report from Study
  Country: CA (occurrence: CA)
  Receive Date: 20171024
  Receipt Date: 20171103
  Transmission Date: 20180321
  Serious: Yes (Other)
  Sender: FDA-Public Use
  Company Number: CA-AMGEN-CANSL2017158718

PATIENT
  Age: 51 Year
  Sex: Female

DRUGS (13)
  1. METOPROLOL. [Concomitant]
     Active Substance: METOPROLOL
     Dosage: 50 MG, BID
  2. AMITRIPTYLINE [Concomitant]
     Active Substance: AMITRIPTYLINE
     Dosage: 25 MG, QHS
  3. VITAMIN D [Concomitant]
     Active Substance: CHOLECALCIFEROL
     Dosage: UNK
  4. COUMADIN [Concomitant]
     Active Substance: WARFARIN SODIUM
     Indication: RAYNAUD^S PHENOMENON
  5. ENBREL [Suspect]
     Active Substance: ETANERCEPT
     Indication: RHEUMATOID ARTHRITIS
     Dosage: 50 MG, QWK
     Route: 058
     Dates: start: 20020704
  6. METHOTREXATE. [Concomitant]
     Active Substance: METHOTREXATE
     Dosage: 20 MG, QWK
     Route: 048
     Dates: start: 1990
  7. NASONEX [Concomitant]
     Active Substance: MOMETASONE FUROATE
     Dosage: UNK UNK, AS NECESSARY
  8. CALCIUM [Concomitant]
     Active Substance: CALCIUM
     Dosage: UNK
  9. ASPIRIN. [Concomitant]
     Active Substance: ASPIRIN
     Dosage: 81 MG, QD
  10. SULFASALAZINE. [Concomitant]
     Active Substance: SULFASALAZINE
     Dosage: UNK
  11. LIPITOR [Concomitant]
     Active Substance: ATORVASTATIN CALCIUM
     Dosage: 10 MG, QHS
  12. PREVACID [Concomitant]
     Active Substance: LANSOPRAZOLE
     Dosage: 30 MG, QD
  13. COUMADIN [Concomitant]
     Active Substance: WARFARIN SODIUM
     Indication: ANTIPHOSPHOLIPID ANTIBODIES POSITIVE
     Dosage: UNK

REACTIONS (22)
  - Antiphospholipid antibodies positive [Unknown]
  - Exostosis [Unknown]
  - Bone loss [Unknown]
  - Myocardial infarction [Unknown]
  - Heart sounds abnormal [Unknown]
  - Angina pectoris [Unknown]
  - Liver injury [Unknown]
  - Sinus bradycardia [Unknown]
  - International normalised ratio increased [Unknown]
  - Tendon rupture [Unknown]
  - Malaise [Unknown]
  - Raynaud^s phenomenon [Unknown]
  - Bone erosion [Unknown]
  - Osteosclerosis [Unknown]
  - Menorrhagia [Unknown]
  - Hypertension [Recovered/Resolved]
  - Osteopenia [Unknown]
  - Feeling abnormal [Unknown]
  - Snoring [Unknown]
  - Calcinosis [Unknown]
  - Arthropathy [Unknown]
  - Bone cyst [Unknown]

NARRATIVE: CASE EVENT DATE: 2002
